FAERS Safety Report 17281443 (Version 1)
Quarter: 2020Q1

REPORT INFORMATION
  Report Type: Spontaneous
  Country: US (occurrence: US)
  Receive Date: 20200117
  Receipt Date: 20200117
  Transmission Date: 20200409
  Serious: Yes (Other)
  Sender: FDA-Public Use
  Company Number: US-ABBVIE-20K-163-3231697-00

PATIENT
  Age: 43 Year
  Sex: Female

DRUGS (2)
  1. HUMIRA [Suspect]
     Active Substance: ADALIMUMAB
     Dosage: ALMOST THREE MONTHS
     Route: 058
  2. HUMIRA [Suspect]
     Active Substance: ADALIMUMAB
     Indication: RHEUMATOID ARTHRITIS
     Dosage: ALMOST THREE MONTHS
     Route: 058
     Dates: start: 201910

REACTIONS (6)
  - Product dispensing error [Not Recovered/Not Resolved]
  - Huntington^s disease [Not Recovered/Not Resolved]
  - Device issue [Unknown]
  - Injection site bruising [Not Recovered/Not Resolved]
  - Fear of injection [Unknown]
  - Incorrect dose administered [Unknown]

NARRATIVE: CASE EVENT DATE: 20200107
